FAERS Safety Report 9233384 (Version 1)
Quarter: 2013Q2

REPORT INFORMATION
  Report Type: Spontaneous
  Country: US (occurrence: US)
  Receive Date: 20130416
  Receipt Date: 20130416
  Transmission Date: 20140414
  Serious: No
  Sender: FDA-Public Use
  Company Number: US-BANPHARM-20130933

PATIENT
  Age: 77 Year
  Sex: Male
  Weight: 98.43 kg

DRUGS (4)
  1. ALEVE LIQUID GELS 220MG [Suspect]
     Indication: BACK PAIN
     Dosage: PRN,
     Route: 048
     Dates: start: 20120420, end: 20120422
  2. THYROID MEDICATION [Concomitant]
     Indication: THYROID DISORDER
  3. HIGH BLOOD PRESSURE MEDICATION [Concomitant]
     Indication: HYPERTENSION
  4. BAYER ASPIRIN 81 MG [Concomitant]

REACTIONS (6)
  - Somnolence [Recovered/Resolved]
  - Nausea [Recovered/Resolved]
  - Disturbance in attention [Recovered/Resolved]
  - Feeling abnormal [Recovered/Resolved]
  - Hunger [Recovered/Resolved]
  - Incorrect dose administered [Unknown]
